FAERS Safety Report 4698761-X (Version None)
Quarter: 2005Q2

REPORT INFORMATION
  Report Type: 
  Country: None (occurrence: None)
  Receive Date: 20050621
  Receipt Date: 20040826
  Transmission Date: 20051028
  Serious: Yes (Hospitalization)
  Sender: FDA-Public Use
  Company Number: PHEH2004US09277

PATIENT
  Age: 79 Year
  Sex: Female

DRUGS (1)
  1. EXELON [Suspect]
     Indication: DEMENTIA
     Dosage: SEE IMAGE
     Route: 065

REACTIONS (4)
  - AGGRESSION [None]
  - ANXIETY [None]
  - DYSURIA [None]
  - INSOMNIA [None]
